FAERS Safety Report 23700660 (Version 1)
Quarter: 2024Q2

REPORT INFORMATION
  Report Type: Spontaneous
  Country: IT (occurrence: IT)
  Receive Date: 20240403
  Receipt Date: 20240403
  Transmission Date: 20240715
  Serious: Yes (Hospitalization, Other)
  Sender: FDA-Public Use
  Company Number: IT-MINISAL02-976818

PATIENT
  Age: 89 Year
  Sex: Female
  Weight: 70 kg

DRUGS (6)
  1. QUETIAPINE [Suspect]
     Active Substance: QUETIAPINE
     Indication: Product used for unknown indication
     Dosage: UNK
     Route: 048
     Dates: start: 202401
  2. IMATINIB MESYLATE [Interacting]
     Active Substance: IMATINIB MESYLATE
     Indication: Gastrointestinal stromal tumour
     Dosage: 200 MILLIGRAM(200MG/DIE)
     Route: 048
  3. TRAZODONE HYDROCHLORIDE [Suspect]
     Active Substance: TRAZODONE HYDROCHLORIDE
     Indication: Depression
     Dosage: UNK
     Route: 048
  4. DELORAZEPAM [Concomitant]
     Active Substance: DELORAZEPAM
     Indication: Insomnia
     Dosage: UNK
     Route: 048
  5. OLMESARTAN MEDOXOMIL [Concomitant]
     Active Substance: OLMESARTAN MEDOXOMIL
     Indication: Hypertension
     Dosage: 40 MILLIGRAM(1CPR (40MG) DIE)
     Route: 048
  6. Pantoprazolo accord [Concomitant]
     Indication: Product used for unknown indication
     Dosage: 20 MILLIGRAM(1 CPR (20MG) DIE)
     Route: 048

REACTIONS (2)
  - Fall [Unknown]
  - Fracture [Unknown]

NARRATIVE: CASE EVENT DATE: 20240309
